FAERS Safety Report 7769848-X (Version None)
Quarter: 2011Q3

REPORT INFORMATION
  Report Type: 
  Country: None (occurrence: None)
  Receive Date: 20110922
  Receipt Date: 20110531
  Transmission Date: 20111222
  Serious: No
  Sender: FDA-Public Use
  Company Number: US-ASTRAZENECA-2011SE33522

PATIENT
  Age: 64 Year
  Sex: Female

DRUGS (7)
  1. PAXIL CR [Concomitant]
     Route: 048
  2. SEROQUEL [Suspect]
     Route: 048
  3. SEROQUEL [Suspect]
     Indication: SLEEP DISORDER
     Route: 048
     Dates: start: 20110501
  4. GABAPENTIN [Concomitant]
     Route: 048
  5. SEROQUEL [Suspect]
     Indication: ANXIETY
     Route: 048
     Dates: start: 20110501
  6. SEROQUEL [Suspect]
     Route: 048
  7. KLONOPIN [Concomitant]
     Route: 048

REACTIONS (8)
  - DIZZINESS [None]
  - OFF LABEL USE [None]
  - THERAPEUTIC PRODUCT INEFFECTIVE FOR UNAPPROVED INDICATION [None]
  - NAUSEA [None]
  - ADVERSE DRUG REACTION [None]
  - MIDDLE INSOMNIA [None]
  - HEADACHE [None]
  - ASTHENIA [None]
